FAERS Safety Report 25107589 (Version 3)
Quarter: 2025Q3

REPORT INFORMATION
  Report Type: Spontaneous
  Country: JP (occurrence: JP)
  Receive Date: 20250321
  Receipt Date: 20250828
  Transmission Date: 20251021
  Serious: Yes (Life-Threatening, Hospitalization, Other)
  Sender: MERCK SHARP & DOHME LLC
  Company Number: JP-MSD-M2024-24084

PATIENT
  Age: 51 Year
  Sex: Female

DRUGS (7)
  1. KEYTRUDA [Suspect]
     Active Substance: PEMBROLIZUMAB
     Indication: Adenoid cystic carcinoma of salivary gland
     Dosage: DOSE DESCRIPTION : 200 MILLIGRAM, Q3W?DAILY DOSE : 9.4 MILLIGRAM?REGIMEN DOSE : 800  MILLIGRAM
     Route: 041
     Dates: start: 20231114, end: 20240201
  2. KEYTRUDA [Suspect]
     Active Substance: PEMBROLIZUMAB
     Indication: Adenoid cystic carcinoma of salivary gland
     Route: 041
     Dates: start: 202406
  3. DENOSUMAB [Concomitant]
     Active Substance: DENOSUMAB
     Indication: Pathological fracture
  4. precipitated calcium [Concomitant]
     Route: 065
  5. CHOLECALCIFEROL [Concomitant]
     Active Substance: CHOLECALCIFEROL
     Route: 065
  6. MAGNESIUM CARBONATE [Concomitant]
     Active Substance: MAGNESIUM CARBONATE
     Route: 065
  7. LEMBOREXANT [Concomitant]
     Active Substance: LEMBOREXANT
     Route: 065

REACTIONS (6)
  - Fulminant type 1 diabetes mellitus [Recovered/Resolved]
  - Malignant neoplasm progression [Unknown]
  - Diabetic ketoacidosis [Recovered/Resolved]
  - Immune-mediated hypothyroidism [Recovered/Resolved]
  - Tubulointerstitial nephritis [Recovered/Resolved]
  - Immune-mediated hypophysitis [Recovered/Resolved]

NARRATIVE: CASE EVENT DATE: 20240101
